FAERS Safety Report 8231261-9 (Version None)
Quarter: 2012Q1

REPORT INFORMATION
  Report Type: 
  Country: None (occurrence: None)
  Receive Date: 20120323
  Receipt Date: 20120229
  Transmission Date: 20120608
  Serious: No
  Sender: FDA-Public Use
  Company Number: US-BAYER-2012-021861

PATIENT
  Age: 46 Year
  Sex: Female
  Weight: 63 kg

DRUGS (3)
  1. ALEVE (CAPLET) [Suspect]
     Indication: ANALGESIC THERAPY
     Dosage: UNK
     Route: 048
     Dates: end: 20120229
  2. HERBALIFE PRODUCTS [Concomitant]
  3. COD LIVER OIL [Concomitant]

REACTIONS (6)
  - OESOPHAGEAL PAIN [None]
  - FOREIGN BODY [None]
  - ABDOMINAL DISCOMFORT [None]
  - NO ADVERSE EVENT [None]
  - THROAT IRRITATION [None]
  - DYSPEPSIA [None]
